FAERS Safety Report 8296202-7 (Version None)
Quarter: 2012Q2

REPORT INFORMATION
  Report Type: 
  Country: None (occurrence: None)
  Receive Date: 20120418
  Receipt Date: 20120416
  Transmission Date: 20120825
  Serious: Yes (Death, Other)
  Sender: FDA-Public Use
  Company Number: US-ELI_LILLY_AND_COMPANY-US201204005193

PATIENT
  Age: 72 Year
  Sex: Male

DRUGS (1)
  1. HUMALOG [Suspect]
     Dosage: UNK UNK, UNKNOWN

REACTIONS (3)
  - DEATH [None]
  - FALL [None]
  - CERVICAL VERTEBRAL FRACTURE [None]
